FAERS Safety Report 11855222 (Version 1)
Quarter: 2015Q4

REPORT INFORMATION
  Report Type: Spontaneous
  Country: US (occurrence: None)
  Receive Date: 20151218
  Receipt Date: 20151218
  Transmission Date: 20160305
  Serious: Yes (Other)
  Sender: FDA-Public Use
  Company Number: None

PATIENT
  Age: 8 Year
  Sex: Female
  Weight: 20.3 kg

DRUGS (13)
  1. LEVOTHYROXINE. [Concomitant]
     Active Substance: LEVOTHYROXINE
  2. HYDROCORTISONE. [Concomitant]
     Active Substance: HYDROCORTISONE
  3. CURCUMIN (TURMERIC) [Concomitant]
  4. NORDITROPIN [Concomitant]
     Active Substance: SOMATROPIN
  5. MIRALAX [Concomitant]
     Active Substance: POLYETHYLENE GLYCOL 3350
  6. VALACYCLOVIR [Concomitant]
     Active Substance: VALACYCLOVIR HYDROCHLORIDE
  7. HIZENTRA (IMMUNE GLOBULIN) [Concomitant]
  8. MELATONIN [Concomitant]
     Active Substance: MELATONIN
  9. VITAMIN D [Concomitant]
     Active Substance: CHOLECALCIFEROL
  10. LIDOCAINE HCL [Suspect]
     Active Substance: LIDOCAINE HYDROCHLORIDE
     Dates: start: 20151008, end: 20151008
  11. DEXAMETHASONE. [Concomitant]
     Active Substance: DEXAMETHASONE
  12. SENNA [Concomitant]
     Active Substance: SENNA LEAF\SENNOSIDES\SENNOSIDES A AND B
  13. METHYLPHENIDATE. [Concomitant]
     Active Substance: METHYLPHENIDATE

REACTIONS (1)
  - Seizure [None]

NARRATIVE: CASE EVENT DATE: 20151008
